FAERS Safety Report 8389483 (Version 3)
Quarter: 2015Q2

REPORT INFORMATION
  Report Type: Report from Study
  Country: US (occurrence: US)
  Receive Date: 20120203
  Receipt Date: 20150630
  Transmission Date: 20150821
  Serious: Yes (Death, Hospitalization)
  Sender: FDA-Public Use
  Company Number: US-ROCHE-1036302

PATIENT
  Sex: Female
  Weight: 117.22 kg

DRUGS (23)
  1. PREDNISONE. [Concomitant]
     Active Substance: PREDNISONE
     Route: 048
     Dates: start: 20061129
  2. RITUXAN [Suspect]
     Active Substance: RITUXIMAB
     Dosage: ON DAY 1 AND DAY 15
     Route: 042
  3. LORTAB (UNITED STATES) [Concomitant]
     Indication: PAIN
     Dosage: 10MG-500MG (AS NEEDED)
     Route: 048
     Dates: start: 20070122
  4. LORTAB (UNITED STATES) [Concomitant]
     Dosage: 7.5 MG-500 MG
     Route: 048
     Dates: start: 20070424
  5. BACTROBAN [Concomitant]
     Active Substance: MUPIROCIN\MUPIROCIN CALCIUM
     Dosage: 2% OINTMENT AS DIRECTED BEFORE BED
     Route: 045
     Dates: start: 20070122
  6. CYMBALTA [Concomitant]
     Active Substance: DULOXETINE HYDROCHLORIDE
     Route: 048
     Dates: start: 20070424
  7. REGLAN [Concomitant]
     Active Substance: METOCLOPRAMIDE HYDROCHLORIDE
     Route: 048
     Dates: start: 20061129
  8. RITUXAN [Suspect]
     Active Substance: RITUXIMAB
     Dosage: ON DAY 1 AND DAY 15
     Route: 042
  9. PHENERGAN [Concomitant]
     Active Substance: PROMETHAZINE HYDROCHLORIDE
     Route: 042
  10. PHOSLO [Concomitant]
     Active Substance: CALCIUM ACETATE
     Route: 048
     Dates: start: 20060823
  11. ALPRAZOLAM. [Concomitant]
     Active Substance: ALPRAZOLAM
     Dosage: AS NEEDED
     Route: 048
     Dates: start: 20060714
  12. DESYREL [Concomitant]
     Active Substance: TRAZODONE HYDROCHLORIDE
     Dosage: BEFORE BED
     Route: 048
     Dates: start: 20060714
  13. BETHAPRIM DS [Concomitant]
     Dosage: 160-800 MG AS DIRECTED
     Route: 048
     Dates: start: 20060714
  14. RITUXAN [Suspect]
     Active Substance: RITUXIMAB
     Indication: GRANULOMATOSIS WITH POLYANGIITIS
     Route: 042
     Dates: start: 200607
  15. LEXAPRO [Concomitant]
     Active Substance: ESCITALOPRAM OXALATE
     Route: 048
     Dates: start: 20061129
  16. TYLENOL [Concomitant]
     Active Substance: ACETAMINOPHEN
     Dosage: 30 MINUTES PRIOR TO INFUSION
     Route: 048
  17. DIPHENHYDRAMINE HYDROCHLORIDE. [Concomitant]
     Active Substance: DIPHENHYDRAMINE HYDROCHLORIDE
     Route: 042
  18. FLONASE (UNITED STATES) [Concomitant]
     Dosage: AS DIRECTED
     Route: 045
     Dates: start: 20070122
  19. SOLU-MEDROL [Concomitant]
     Active Substance: METHYLPREDNISOLONE SODIUM SUCCINATE
     Route: 042
  20. BENADRYL [Concomitant]
     Active Substance: DIPHENHYDRAMINE HYDROCHLORIDE
     Route: 042
  21. DURAGESIC [Concomitant]
     Active Substance: FENTANYL
     Dosage: 50 MCG/HR
     Route: 061
  22. DARVOCET-N 100 [Concomitant]
     Active Substance: ACETAMINOPHEN\PROPOXYPHENE NAPSYLATE
     Dosage: 100-650 MG AS DIRECTED
     Route: 048
     Dates: start: 20060714
  23. PREVACID [Concomitant]
     Active Substance: LANSOPRAZOLE
     Route: 048
     Dates: start: 20070424

REACTIONS (12)
  - Rash [Unknown]
  - Wound [Recovered/Resolved]
  - Pneumonia [Unknown]
  - Condition aggravated [Unknown]
  - Nausea [Unknown]
  - Pain [Unknown]
  - Blood iron abnormal [Unknown]
  - Off label use [Unknown]
  - Sepsis [Unknown]
  - Death [Fatal]
  - Lung disorder [Unknown]
  - Pruritus [Unknown]
